FAERS Safety Report 20016487 (Version 1)
Quarter: 2021Q4

REPORT INFORMATION
  Report Type: Spontaneous
  Country: US (occurrence: None)
  Receive Date: 20211104
  Receipt Date: 20211104
  Transmission Date: 20220303
  Serious: Yes (Hospitalization)
  Sender: FDA-Public Use
  Company Number: None

PATIENT
  Age: 65 Year
  Sex: Male

DRUGS (1)
  1. ABIRATERONE [Suspect]
     Active Substance: ABIRATERONE
     Indication: Product used for unknown indication
     Dosage: OTHER QUANTITY : 1000;?FREQUENCY : DAILY;?
     Route: 048
     Dates: start: 202105

REACTIONS (9)
  - Decreased appetite [None]
  - Migraine [None]
  - Hot flush [None]
  - Back pain [None]
  - Disability [None]
  - Gait disturbance [None]
  - Hypoxia [None]
  - Vitamin B12 decreased [None]
  - Intervertebral disc disorder [None]

NARRATIVE: CASE EVENT DATE: 20211013
